FAERS Safety Report 15586792 (Version 2)
Quarter: 2018Q4

REPORT INFORMATION
  Report Type: Report from Study
  Country: US (occurrence: US)
  Receive Date: 20181105
  Receipt Date: 20181106
  Transmission Date: 20190205
  Serious: Yes (Other)
  Sender: FDA-Public Use
  Company Number: US-JNJFOC-20181040720

PATIENT
  Sex: Female
  Weight: 52.16 kg

DRUGS (3)
  1. REMICADE [Suspect]
     Active Substance: INFLIXIMAB
     Indication: JUVENILE IDIOPATHIC ARTHRITIS
     Route: 042
     Dates: start: 201803
  2. METHOTREXATE. [Concomitant]
     Active Substance: METHOTREXATE
     Route: 065
  3. LEUKOVORIN [Concomitant]
     Active Substance: LEUCOVORIN SODIUM
     Route: 065

REACTIONS (5)
  - Sinusitis [Not Recovered/Not Resolved]
  - Off label use [Unknown]
  - Drug ineffective for unapproved indication [Unknown]
  - Juvenile idiopathic arthritis [Not Recovered/Not Resolved]
  - Vaginal disorder [Not Recovered/Not Resolved]

NARRATIVE: CASE EVENT DATE: 2018
